FAERS Safety Report 4701516-0 (Version None)
Quarter: 2005Q2

REPORT INFORMATION
  Report Type: 
  Country: None (occurrence: None)
  Receive Date: 20050628
  Receipt Date: 20050606
  Transmission Date: 20051028
  Serious: Yes (Hospitalization)
  Sender: FDA-Public Use
  Company Number: PHEH2005US06338

PATIENT
  Age: 28 Year
  Sex: Female
  Weight: 267 kg

DRUGS (3)
  1. LOTENSIN [Suspect]
     Indication: PROPHYLAXIS
     Dosage: 10 MG, QD
     Dates: start: 20010622
  2. GLUCOPHAGE [Concomitant]
     Indication: DIABETES MELLITUS
     Dosage: 500 MG, BID
     Dates: start: 20001001
  3. CRESTOR [Concomitant]
     Dates: start: 20040901

REACTIONS (4)
  - DIABETES MELLITUS [None]
  - DRUG EXPOSURE DURING PREGNANCY [None]
  - FUNGAL INFECTION [None]
  - PROTEINURIA [None]
